FAERS Safety Report 6178142-2 (Version None)
Quarter: 2009Q2

REPORT INFORMATION
  Report Type: 
  Country: None (occurrence: None)
  Receive Date: 20090504
  Receipt Date: 20090427
  Transmission Date: 20091009
  Serious: Yes (Hospitalization)
  Sender: FDA-Public Use
  Company Number: IT-WYE-H09031409

PATIENT
  Sex: Female

DRUGS (8)
  1. CORDARONE [Suspect]
     Indication: ATRIAL FIBRILLATION
     Route: 048
     Dates: start: 20090123, end: 20090318
  2. SIVASTIN [Suspect]
     Indication: DYSLIPIDAEMIA
     Route: 048
     Dates: start: 20090302, end: 20090315
  3. ZYLORIC [Concomitant]
     Route: 048
     Dates: start: 20090101
  4. LASIX [Concomitant]
     Route: 048
     Dates: start: 20090101
  5. KANRENOL [Concomitant]
     Route: 048
     Dates: start: 20090101
  6. ANTRA [Concomitant]
     Route: 048
     Dates: start: 20090101
  7. TORVAST [Suspect]
     Indication: DYSLIPIDAEMIA
     Route: 048
     Dates: start: 20090122, end: 20090101
  8. ZOFENOPRIL CALCIUM [Concomitant]
     Dosage: UNSPECIFIED
     Route: 048

REACTIONS (5)
  - BLOOD CREATINE PHOSPHOKINASE INCREASED [None]
  - GAIT DISTURBANCE [None]
  - MUSCULAR WEAKNESS [None]
  - MYALGIA [None]
  - TRANSAMINASES INCREASED [None]
